FAERS Safety Report 6075296-3 (Version None)
Quarter: 2009Q1

REPORT INFORMATION
  Report Type: 
  Country: None (occurrence: None)
  Receive Date: 20090212
  Receipt Date: 20090209
  Transmission Date: 20090719
  Serious: Yes (Life-Threatening)
  Sender: FDA-Public Use
  Company Number: PHEH2008US06548

PATIENT
  Age: 78 Year
  Sex: Female

DRUGS (9)
  1. RECLAST [Suspect]
     Dosage: UNK
     Dates: start: 20080603
  2. PREMARIN [Concomitant]
     Dosage: 0.3 MG, QD
  3. VITAMIN D [Concomitant]
  4. VITAMIN E [Concomitant]
  5. VITAMIN B6 [Concomitant]
  6. VITAMIN B-12 [Concomitant]
  7. FISH OIL [Concomitant]
  8. TUMS [Concomitant]
  9. PRILOSEC [Concomitant]

REACTIONS (6)
  - APPARENT DEATH [None]
  - BONE PAIN [None]
  - EYE PAIN [None]
  - HYPOKINESIA [None]
  - PAIN [None]
  - PAIN IN EXTREMITY [None]
